FAERS Safety Report 23632293 (Version 1)
Quarter: 2024Q1

REPORT INFORMATION
  Report Type: Spontaneous
  Country: US (occurrence: US)
  Receive Date: 20240314
  Receipt Date: 20240314
  Transmission Date: 20240409
  Serious: Yes (Other)
  Sender: FDA-Public Use
  Company Number: US-JNJFOC-20240337074

PATIENT
  Age: 25 Year
  Sex: Female

DRUGS (3)
  1. SPRAVATO [Suspect]
     Active Substance: ESKETAMINE
     Indication: Depression
     Dosage: ^56 MG, 1 TOTAL DOSE^
     Dates: start: 20240131, end: 20240131
  2. SPRAVATO [Suspect]
     Active Substance: ESKETAMINE
     Dosage: ^84 MG, 6 TOTAL DOSES^
     Dates: start: 20240202, end: 20240223
  3. SPRAVATO [Suspect]
     Active Substance: ESKETAMINE
     Dosage: ^28 MG, 1 TOTAL DOSE^
     Dates: start: 20240228, end: 20240228

REACTIONS (1)
  - Loss of consciousness [Unknown]

NARRATIVE: CASE EVENT DATE: 20240209
